FAERS Safety Report 4337604-0 (Version None)
Quarter: 2004Q2

REPORT INFORMATION
  Report Type: 
  Country: None (occurrence: None)
  Receive Date: 20040413
  Receipt Date: 20030311
  Transmission Date: 20050107
  Serious: No
  Sender: FDA-Public Use
  Company Number: US-GLAXOSMITHKLINE-A0399868A

PATIENT
  Age: 18 Year
  Sex: Male

DRUGS (2)
  1. DEXEDRINE [Suspect]
     Dosage: 10MG PER DAY
     Route: 048
  2. NO CONCURRENT MEDICATIONS [Concomitant]

REACTIONS (2)
  - DRUG INEFFECTIVE [None]
  - HEADACHE [None]
